FAERS Safety Report 5334578-0 (Version None)
Quarter: 2007Q2

REPORT INFORMATION
  Report Type: 
  Country: None (occurrence: None)
  Receive Date: 20070525
  Receipt Date: 20070523
  Transmission Date: 20071010
  Serious: Yes (Death)
  Sender: FDA-Public Use
  Company Number: KR-JNJFOC-20070505382

PATIENT
  Age: 33 Year
  Sex: Female

DRUGS (8)
  1. SPORANOX [Suspect]
     Route: 042
  2. SPORANOX [Suspect]
     Indication: FEBRILE NEUTROPENIA
     Route: 042
  3. TAGOCID [Concomitant]
     Indication: FEBRILE NEUTROPENIA
     Route: 042
  4. MEROPEN [Concomitant]
     Indication: FEBRILE NEUTROPENIA
     Route: 042
  5. LEUKOSTIM [Concomitant]
     Indication: FEBRILE NEUTROPENIA
     Route: 042
  6. METHYSOL [Concomitant]
     Indication: FEBRILE NEUTROPENIA
     Route: 042
  7. MAXIPIME [Concomitant]
     Indication: FEBRILE NEUTROPENIA
     Route: 042
  8. FUNGIZONE [Concomitant]
     Indication: FEBRILE NEUTROPENIA
     Route: 042

REACTIONS (2)
  - MENTAL STATUS CHANGES [None]
  - NEUTROPENIC SEPSIS [None]
